FAERS Safety Report 10029908 (Version 1)
Quarter: 2014Q1

REPORT INFORMATION
  Report Type: Spontaneous
  Country: US (occurrence: None)
  Receive Date: 20140306
  Receipt Date: 20140306
  Transmission Date: 20141002
  Serious: Yes (Other)
  Sender: FDA-Public Use
  Company Number: 163-21880-12110968

PATIENT
  Age: 80 Year
  Sex: Male
  Weight: 77.11 kg

DRUGS (2)
  1. REVLIMID [Suspect]
     Indication: PLASMA CELL MYELOMA
     Dosage: TEMP. INTERRUPTED
     Route: 048
     Dates: start: 20120514
  2. VITAMINS (VITAMINS) [Concomitant]

REACTIONS (2)
  - Rash generalised [None]
  - Dry skin [None]
